FAERS Safety Report 9393033 (Version 1)
Quarter: 2013Q3

REPORT INFORMATION
  Report Type: Spontaneous
  Country: US (occurrence: US)
  Receive Date: 20130710
  Receipt Date: 20130710
  Transmission Date: 20140515
  Serious: Yes (Hospitalization, Other)
  Sender: FDA-Public Use
  Company Number: US-BAYER-2013-083301

PATIENT
  Sex: 0

DRUGS (1)
  1. CIPRO [Suspect]

REACTIONS (4)
  - Dyspnoea [None]
  - Dizziness [None]
  - Blindness [None]
  - Respiratory distress [None]
